FAERS Safety Report 17323631 (Version 2)
Quarter: 2021Q1

REPORT INFORMATION
  Report Type: Spontaneous
  Country: US (occurrence: US)
  Receive Date: 20200127
  Receipt Date: 20210326
  Transmission Date: 20210419
  Serious: Yes (Other)
  Sender: FDA-Public Use
  Company Number: US-ABBVIE-20K-163-3237895-00

PATIENT

DRUGS (1)
  1. IMBRUVICA [Suspect]
     Active Substance: IBRUTINIB
     Indication: MANTLE CELL LYMPHOMA
     Route: 065

REACTIONS (22)
  - Haemorrhage [Unknown]
  - Muscle spasms [Unknown]
  - Pericardial effusion [Unknown]
  - Mucosal inflammation [Unknown]
  - Neutropenia [Unknown]
  - Subdural haematoma [Unknown]
  - Transient ischaemic attack [Unknown]
  - Lymphopenia [Unknown]
  - Atrial flutter [Unknown]
  - Haemorrhage intracranial [Unknown]
  - Rash [Unknown]
  - Ulcer [Unknown]
  - Anaemia [Unknown]
  - Contusion [Unknown]
  - Atrial fibrillation [Unknown]
  - Thrombocytopenia [Unknown]
  - Diarrhoea [Unknown]
  - Transaminases increased [Unknown]
  - Fatigue [Unknown]
  - Hypertension [Unknown]
  - Infection [Unknown]
  - Myalgia [Unknown]
